FAERS Safety Report 6635861-9 (Version None)
Quarter: 2010Q1

REPORT INFORMATION
  Report Type: 
  Country: None (occurrence: None)
  Receive Date: 20100316
  Receipt Date: 20100305
  Transmission Date: 20100710
  Serious: Yes (Hospitalization)
  Sender: FDA-Public Use
  Company Number: US-JNJFOC-20100302292

PATIENT
  Sex: Female

DRUGS (6)
  1. REMICADE [Suspect]
     Indication: CROHN'S DISEASE
     Route: 042
  2. REMICADE [Suspect]
     Route: 042
  3. WELLBUTRIN [Concomitant]
     Indication: DEPRESSION
  4. SERTRALINE HCL [Concomitant]
     Indication: DEPRESSION
  5. MESALAZINE [Concomitant]
     Indication: CROHN'S DISEASE
  6. CLONAZEPAM [Concomitant]
     Indication: RESTLESS LEGS SYNDROME

REACTIONS (5)
  - ABNORMAL SENSATION IN EYE [None]
  - EYE PAIN [None]
  - PAIN IN JAW [None]
  - TACHYCARDIA [None]
  - VISION BLURRED [None]
